FAERS Safety Report 7802678-9 (Version None)
Quarter: 2011Q4

REPORT INFORMATION
  Report Type: 
  Country: None (occurrence: None)
  Receive Date: 20111005
  Receipt Date: 20110921
  Transmission Date: 20120403
  Serious: Yes (Hospitalization)
  Sender: FDA-Public Use
  Company Number: 2011SP044663

PATIENT
  Age: 44 Year
  Sex: Male
  Weight: 84 kg

DRUGS (3)
  1. VICTRELIS [Suspect]
     Indication: HEPATITIS C
     Dosage: 2400 MG, QD
     Dates: start: 20110825
  2. PEGASYS [Suspect]
     Indication: HEPATITIS C
     Dosage: 180 MCG, QW
     Dates: start: 20110728
  3. COPEGUS [Suspect]
     Indication: HEPATITIS C
     Dosage: 1200 MG, QD
     Dates: start: 20110728

REACTIONS (2)
  - ANAL HAEMORRHAGE [None]
  - HAEMORRHOIDS [None]
